FAERS Safety Report 19744187 (Version 1)
Quarter: 2021Q3

REPORT INFORMATION
  Report Type: Spontaneous
  Country: US (occurrence: US)
  Receive Date: 20210825
  Receipt Date: 20210825
  Transmission Date: 20211014
  Serious: No
  Sender: FDA-Public Use
  Company Number: US-ASTRAZENECA-2021A666331

PATIENT
  Age: 64 Year
  Sex: Female
  Weight: 99.8 kg

DRUGS (2)
  1. TAGRISSO [Suspect]
     Active Substance: OSIMERTINIB
     Indication: NON-SMALL CELL LUNG CANCER
     Route: 048
     Dates: start: 20210703
  2. TAGRISSO [Suspect]
     Active Substance: OSIMERTINIB
     Indication: NON-SMALL CELL LUNG CANCER
     Route: 048
     Dates: start: 20210424, end: 20210619

REACTIONS (12)
  - Ingrowing nail [Not Recovered/Not Resolved]
  - Asthenia [Not Recovered/Not Resolved]
  - Skin fissures [Not Recovered/Not Resolved]
  - Blood creatinine increased [Not Recovered/Not Resolved]
  - Feeling abnormal [Unknown]
  - Skin discolouration [Unknown]
  - Insomnia [Unknown]
  - Infected bite [Unknown]
  - Rash [Not Recovered/Not Resolved]
  - Arthropod bite [Unknown]
  - Dry eye [Not Recovered/Not Resolved]
  - Thermal burns of eye [Not Recovered/Not Resolved]

NARRATIVE: CASE EVENT DATE: 2021
